FAERS Safety Report 4767735-2 (Version None)
Quarter: 2005Q3

REPORT INFORMATION
  Report Type: 
  Country: None (occurrence: None)
  Receive Date: 20050912
  Receipt Date: 20050824
  Transmission Date: 20060218
  Serious: Yes (Life-Threatening)
  Sender: FDA-Public Use
  Company Number: DSA_26927_2005

PATIENT
  Age: 77 Year
  Sex: Female

DRUGS (3)
  1. RENIVACE [Suspect]
     Indication: HYPERTENSION
     Dosage: 5 MG QD PO
     Route: 048
     Dates: end: 20050808
  2. NU LOTAN [Suspect]
     Indication: HYPERTENSION
     Dosage: 100 MG QD PO
     Route: 048
     Dates: end: 20050808
  3. SUNRYTHM [Suspect]
     Indication: ATRIAL FIBRILLATION
     Dosage: 50 MG BID PO
     Route: 048
     Dates: end: 20050808

REACTIONS (6)
  - BLOOD CREATININE INCREASED [None]
  - BLOOD UREA INCREASED [None]
  - BRADYCARDIA [None]
  - HYPERKALAEMIA [None]
  - SINUS ARREST [None]
  - VENTRICULAR ARRHYTHMIA [None]
